FAERS Safety Report 17438969 (Version 2)
Quarter: 2020Q2

REPORT INFORMATION
  Report Type: Spontaneous
  Country: IE (occurrence: IE)
  Receive Date: 20200220
  Receipt Date: 20200413
  Transmission Date: 20200713
  Serious: Yes (Other)
  Sender: FDA-Public Use
  Company Number: IE-TEVA-2020-IE-1188902

PATIENT
  Sex: Male

DRUGS (6)
  1. OMEPRAZOLE. [Suspect]
     Active Substance: OMEPRAZOLE
     Dosage: 40 MG, BID
     Route: 065
  2. VALSARTAN. [Suspect]
     Active Substance: VALSARTAN
     Dosage: 160 MG, QD
     Route: 065
  3. FUROSEMIDE. [Suspect]
     Active Substance: FUROSEMIDE
     Dosage: 40 MG, QD
     Route: 065
  4. APIXABAN [Suspect]
     Active Substance: APIXABAN
     Dosage: 2.5 MG, BID
     Route: 065
  5. EPLERENONE. [Suspect]
     Active Substance: EPLERENONE
     Dosage: 25 MG, QD
     Route: 065
  6. TAMSULOSIN HYDROCHLORIDE. [Suspect]
     Active Substance: TAMSULOSIN HYDROCHLORIDE
     Dosage: 400 MCG ONCE DAILY
     Route: 065

REACTIONS (1)
  - Cardiac amyloidosis [Unknown]

NARRATIVE: CASE EVENT DATE: 20191218
